FAERS Safety Report 6354238-7 (Version None)
Quarter: 2009Q3

REPORT INFORMATION
  Report Type: 
  Country: None (occurrence: None)
  Receive Date: 20090914
  Receipt Date: 20090814
  Transmission Date: 20100115
  Serious: No
  Sender: FDA-Public Use
  Company Number: US-BAYER-200925257NA

PATIENT
  Age: 35 Year
  Sex: Male
  Weight: 82 kg

DRUGS (8)
  1. AVELOX [Suspect]
     Indication: UPPER RESPIRATORY TRACT INFECTION
     Dosage: TOTAL DAILY DOSE: 400 MG  UNIT DOSE: 400 MG
     Dates: start: 20090601
  2. AVELOX [Suspect]
     Dates: start: 20090501, end: 20090510
  3. BIAXIN [Suspect]
     Indication: DRUG USE FOR UNKNOWN INDICATION
     Dates: start: 20090501
  4. PREDNISONE [Concomitant]
  5. ADVAIR HFA [Concomitant]
  6. SINGULAIR [Concomitant]
     Dosage: ONCE A DAY NOS
  7. NASONEX [Concomitant]
  8. ALLERGY SHOT [Concomitant]

REACTIONS (3)
  - ARTHRALGIA [None]
  - BRONCHITIS [None]
  - PARAESTHESIA [None]
